FAERS Safety Report 10715960 (Version 1)
Quarter: 2015Q1

REPORT INFORMATION
  Report Type: Spontaneous
  Country: US (occurrence: US)
  Receive Date: 20150116
  Receipt Date: 20150116
  Transmission Date: 20150721
  Serious: No
  Sender: FDA-Public Use
  Company Number: US-PFIZER INC-2015013572

PATIENT
  Age: 45 Year
  Sex: Female

DRUGS (4)
  1. CABERGOLINE. [Suspect]
     Active Substance: CABERGOLINE
     Indication: ACROMEGALY
     Dosage: UNK
  2. CABERGOLINE. [Suspect]
     Active Substance: CABERGOLINE
     Dosage: DOSE INCREASED
  3. CABERGOLINE. [Suspect]
     Active Substance: CABERGOLINE
     Dosage: 0.5 MG, 2X/WEEK
  4. SOMAVERT [Suspect]
     Active Substance: PEGVISOMANT
     Indication: ACROMEGALY
     Dosage: UNK

REACTIONS (4)
  - Pain [Recovered/Resolved]
  - Nausea [Recovered/Resolved]
  - Asthenia [Recovering/Resolving]
  - Influenza [Recovered/Resolved]
